FAERS Safety Report 9057388 (Version 3)
Quarter: 2019Q3

REPORT INFORMATION
  Report Type: Spontaneous
  Country: DE (occurrence: DE)
  Receive Date: 20130204
  Receipt Date: 20190906
  Transmission Date: 20191005
  Serious: Yes (Other)
  Sender: FDA-Public Use
  Company Number: GXKR2013DE000722

PATIENT
  Age: 8 Month
  Sex: Male
  Weight: 2.74 kg

DRUGS (11)
  1. CENTRUM MATERNA [Concomitant]
     Active Substance: MINERALS\VITAMINS
     Indication: FOETAL EXPOSURE DURING PREGNANCY
     Dosage: MATERNAL DOSE: TOTAL DAILY DOSE: 0.4 MG
     Route: 064
     Dates: start: 20111025, end: 20120621
  2. FOLIC ACID. [Concomitant]
     Active Substance: FOLIC ACID
     Indication: FOETAL EXPOSURE DURING PREGNANCY
     Dosage: MATERNAL DOSE: 0.4 [MG/D ]
     Route: 064
     Dates: start: 20111025, end: 20120621
  3. MOVICOL [Concomitant]
     Active Substance: POLYETHYLENE GLYCOL 3350\POTASSIUM CHLORIDE\SODIUM BICARBONATE\SODIUM CHLORIDE
     Dosage: UNK
     Route: 064
  4. TREVILOR RETARD [Suspect]
     Active Substance: VENLAFAXINE HYDROCHLORIDE
     Indication: FOETAL EXPOSURE DURING PREGNANCY
     Dosage: MATERNAL DOSE: 50 [MG/D ]/ REDUCED DOSAGE FROM GW 5+2 (75MG/D)
     Route: 064
     Dates: start: 20110928, end: 20120621
  5. TREVILOR RETARD [Suspect]
     Active Substance: VENLAFAXINE HYDROCHLORIDE
     Dosage: MATERNAL DOSE: TOTAL DAILY DOSE: 150 MG
     Route: 064
  6. TREVILOR RETARD [Suspect]
     Active Substance: VENLAFAXINE HYDROCHLORIDE
     Dosage: MATERNAL DOSE: TOTAL DAILY DOSE: 75 MG
     Route: 064
  7. BUSPIRON [HYOSCINE BUTYLBROMIDE;METAMIZOLE SODIUM MONOHYDRATE] [Concomitant]
     Active Substance: BUTYLSCOPOLAMINE BROMIDE\METAMIZOLE SODIUM
     Indication: FOETAL EXPOSURE DURING PREGNANCY
     Dosage: MATERNAL DOSE: 20 [MG/D (5-5-10) ]
     Route: 064
     Dates: start: 20110928, end: 20111024
  8. LYRICA [Concomitant]
     Active Substance: PREGABALIN
     Indication: FOETAL EXPOSURE DURING PREGNANCY
     Dosage: MATERNAL DOSE: 225 [MG/D ]
     Route: 064
     Dates: start: 20110928, end: 20111027
  9. MOVICOL [Concomitant]
     Active Substance: POLYETHYLENE GLYCOL 3350\POTASSIUM CHLORIDE\SODIUM BICARBONATE\SODIUM CHLORIDE
     Indication: FOETAL EXPOSURE DURING PREGNANCY
     Dosage: UNK
     Route: 064
     Dates: start: 20111028, end: 20120621
  10. PROMETHAZINE [Suspect]
     Active Substance: PROMETHAZINE HYDROCHLORIDE
     Indication: FOETAL EXPOSURE DURING PREGNANCY
     Dosage: MATERNAL DOSE: 25 [MG/D ]
     Route: 064
     Dates: start: 20110928, end: 20120621
  11. TAVOR (SIMVASTATIN) [Suspect]
     Active Substance: SIMVASTATIN
     Indication: FOETAL EXPOSURE DURING PREGNANCY
     Dosage: MATERNAL DOSE: 1 [MG/D]
     Route: 064
     Dates: start: 20110928, end: 20120621

REACTIONS (5)
  - Neonatal respiratory distress [Recovered/Resolved]
  - Bradycardia neonatal [Recovered/Resolved]
  - Low birth weight baby [Recovered/Resolved]
  - Foetal heart rate deceleration abnormality [Recovered/Resolved]
  - Maternal exposure during pregnancy [Recovered/Resolved]

NARRATIVE: CASE EVENT DATE: 20110928
